FAERS Safety Report 4800218-X (Version None)
Quarter: 2005Q4

REPORT INFORMATION
  Report Type: 
  Country: None (occurrence: None)
  Receive Date: 20051017
  Receipt Date: 20051004
  Transmission Date: 20060501
  Serious: Yes (Disabling)
  Sender: FDA-Public Use
  Company Number: 2005AC01588

PATIENT
  Sex: Female

DRUGS (1)
  1. ARIMIDEX [Suspect]
     Indication: BREAST CANCER
     Dates: start: 20041201

REACTIONS (3)
  - ALOPECIA [None]
  - ARTHRALGIA [None]
  - VISUAL DISTURBANCE [None]
